FAERS Safety Report 4398559-6 (Version None)
Quarter: 2004Q3

REPORT INFORMATION
  Report Type: 
  Country: None (occurrence: None)
  Receive Date: 20040714
  Receipt Date: 20040714
  Transmission Date: 20050211
  Serious: Yes (Hospitalization)
  Sender: FDA-Public Use
  Company Number: None

PATIENT
  Age: 43 Year
  Sex: Female
  Weight: 32.7951 kg

DRUGS (4)
  1. CPT-11 [Suspect]
     Indication: ADENOCARCINOMA
     Dosage: 75 MG/M2 Q WK X 2
     Dates: start: 20040630
  2. CPT-11 [Suspect]
     Indication: ADENOCARCINOMA
     Dosage: 75 MG/M2 Q WK X 2
     Dates: start: 20040709
  3. EPIRUBICIN [Suspect]
     Indication: ADENOCARCINOMA
     Dosage: 30 MG/M2 Q WL X 2
     Dates: start: 20040629
  4. EPIRUBICIN [Suspect]
     Indication: ADENOCARCINOMA
     Dosage: 30 MG/M2 Q WL X 2
     Dates: start: 20040708

REACTIONS (2)
  - ABDOMINAL PAIN [None]
  - DIARRHOEA [None]
